FAERS Safety Report 6099558-9 (Version None)
Quarter: 2009Q1

REPORT INFORMATION
  Report Type: 
  Country: None (occurrence: None)
  Receive Date: 20090226
  Receipt Date: 20090212
  Transmission Date: 20090719
  Serious: Yes (Hospitalization)
  Sender: FDA-Public Use
  Company Number: 2009S1000462

PATIENT
  Sex: Male

DRUGS (2)
  1. MIRTAZAPINE [Suspect]
     Indication: DEPRESSION
     Dosage: 30 MG;DAILY; ORAL
     Route: 048
     Dates: start: 20081020, end: 20081120
  2. RANTOLOC (CON.) [Concomitant]

REACTIONS (5)
  - APPETITE DISORDER [None]
  - FATIGUE [None]
  - HEPATITIS CHOLESTATIC [None]
  - HEPATITIS TOXIC [None]
  - WEIGHT DECREASED [None]
